FAERS Safety Report 9228243 (Version 1)
Quarter: 2013Q1

REPORT INFORMATION
  Report Type: Spontaneous
  Country: US (occurrence: None)
  Receive Date: 20121024
  Receipt Date: 20121024
  Transmission Date: 20140127
  Serious: Yes (Hospitalization)
  Sender: FDA-Public Use
  Company Number: DSA_58445_2012

PATIENT
  Age: 46 Year
  Sex: Female

DRUGS (18)
  1. BUPROPION HYDROCHLORIDE 150MG [Suspect]
     Indication: TOBACCO ABUSE
     Route: 048
     Dates: start: 20120109, end: 20120131
  2. VARENICLINE TARTRATE [Suspect]
     Indication: TOBACCO ABUSE
     Dosage: (0.5-1.0MG TABLETS ORAL)
     Route: 048
     Dates: start: 20120109, end: 20120131
  3. NICOTINE PATCH [Suspect]
     Indication: TOBACCO ABUSE
     Route: 062
     Dates: start: 20120117, end: 20120131
  4. ROBAXIN [Concomitant]
  5. KLONOPIN [Concomitant]
  6. FLOVENT [Concomitant]
  7. ALBUTEROL [Concomitant]
  8. CIMETIDINE [Concomitant]
  9. TYLENOL W/CODEINE NO. 3 [Concomitant]
  10. PERI-COLACE [Concomitant]
  11. ANUSOL HC [Concomitant]
  12. B-COMPLEX /00003501/ [Concomitant]
  13. FISH OIL [Concomitant]
  14. GARLIC /01570501/ [Concomitant]
  15. COENZYME Q10 [Concomitant]
  16. CALCIUM WITH VITAMIN D/01233101/ [Concomitant]
  17. FOLLICARE NUTRITIONAL SUPPLEMENT [Concomitant]
  18. GINSENG /01384001/ [Concomitant]

REACTIONS (1)
  - Bipolar I disorder [None]
